FAERS Safety Report 19905135 (Version 1)
Quarter: 2021Q3

REPORT INFORMATION
  Report Type: Spontaneous
  Country: US (occurrence: US)
  Receive Date: 20210930
  Receipt Date: 20210930
  Transmission Date: 20211014
  Serious: No
  Sender: FDA-Public Use
  Company Number: None

PATIENT
  Sex: Male

DRUGS (13)
  1. LETAIRIS [Suspect]
     Active Substance: AMBRISENTAN
     Indication: PULMONARY ARTERIAL HYPERTENSION
     Route: 048
  2. TRAVATAN Z [Concomitant]
     Active Substance: TRAVOPROST
  3. CHLORTHALIDONE. [Concomitant]
     Active Substance: CHLORTHALIDONE
  4. METOPROLOL TARTRATE. [Concomitant]
     Active Substance: METOPROLOL TARTRATE
  5. TYVASO [Concomitant]
     Active Substance: TREPROSTINIL
  6. LYRICA [Concomitant]
     Active Substance: PREGABALIN
  7. VITAMIN D [Concomitant]
     Active Substance: VITAMIN D NOS
  8. RHOPRESSA [Concomitant]
     Active Substance: NETARSUDIL MESYLATE
  9. ALYQ [Concomitant]
     Active Substance: TADALAFIL
  10. VITAMIN B12 [Concomitant]
     Active Substance: CYANOCOBALAMIN
  11. ATORVASTATIN [Concomitant]
     Active Substance: ATORVASTATIN
  12. ALEVE [Concomitant]
     Active Substance: NAPROXEN SODIUM
  13. LOSARTAN. [Concomitant]
     Active Substance: LOSARTAN

REACTIONS (1)
  - Feeling abnormal [None]
